FAERS Safety Report 6248370-6 (Version None)
Quarter: 2009Q2

REPORT INFORMATION
  Report Type: 
  Country: None (occurrence: None)
  Receive Date: 20090625
  Receipt Date: 20090625
  Transmission Date: 20091009
  Serious: Yes (Life-Threatening, Other)
  Sender: FDA-Public Use
  Company Number: None

PATIENT
  Sex: Female

DRUGS (7)
  1. LAMOTRIGINE [Suspect]
     Indication: EPILEPSY
     Dosage: 200 MG TID PO
     Route: 048
  2. TOPIRAMATE [Suspect]
     Indication: EPILEPSY
     Dosage: 200 MG BID PO
     Route: 048
  3. VALTREX [Concomitant]
  4. CELEBREX [Concomitant]
  5. PAXIL [Concomitant]
  6. PREDNISONE TAB [Concomitant]
  7. MODURETIC 5-50 [Concomitant]

REACTIONS (2)
  - PRODUCT SUBSTITUTION ISSUE [None]
  - STATUS EPILEPTICUS [None]
